FAERS Safety Report 10234649 (Version 1)
Quarter: 2014Q2

REPORT INFORMATION
  Report Type: Spontaneous
  Country: US (occurrence: US)
  Receive Date: 20140613
  Receipt Date: 20140613
  Transmission Date: 20141212
  Serious: No
  Sender: FDA-Public Use
  Company Number: US-009507513-1406USA004622

PATIENT
  Age: 86 Year
  Sex: Female

DRUGS (1)
  1. MOMETASONE FUROATE (ORAL) [Suspect]
     Dosage: ONE INHALATION TWICE DAILY
     Route: 055
     Dates: start: 200506, end: 201406

REACTIONS (3)
  - Throat irritation [Recovered/Resolved]
  - Wrong technique in drug usage process [Unknown]
  - Product quality issue [Unknown]
